FAERS Safety Report 4703214-6 (Version None)
Quarter: 2005Q2

REPORT INFORMATION
  Report Type: 
  Country: None (occurrence: None)
  Receive Date: 20050629
  Receipt Date: 20050621
  Transmission Date: 20051028
  Serious: Yes (Other)
  Sender: FDA-Public Use
  Company Number: PHBS2005BR08921

PATIENT
  Age: 67 Year
  Sex: Female
  Weight: 65 kg

DRUGS (4)
  1. TOFRANIL [Suspect]
     Indication: DEPRESSION
     Dosage: 25 MG, TID
     Dates: start: 20050406
  2. OLCADIL [Suspect]
     Indication: DEPRESSION
     Dosage: UNK, UNK
     Route: 065
     Dates: start: 20050406
  3. CLONAZEPAM [Concomitant]
     Route: 048
  4. DIAZEPAM [Concomitant]
     Indication: DEPRESSION
     Dosage: 5 MG, BID
     Route: 048

REACTIONS (9)
  - ABDOMINAL PAIN [None]
  - ABDOMINAL PAIN UPPER [None]
  - AGITATION [None]
  - BILIARY COLIC [None]
  - DIZZINESS [None]
  - DYSGEUSIA [None]
  - INSOMNIA [None]
  - RETCHING [None]
  - TACHYCARDIA [None]
